FAERS Safety Report 11054198 (Version 1)
Quarter: 2015Q2

REPORT INFORMATION
  Report Type: Spontaneous
  Country: FR (occurrence: FR)
  Receive Date: 20150422
  Receipt Date: 20150422
  Transmission Date: 20150821
  Serious: Yes (Hospitalization)
  Sender: FDA-Public Use
  Company Number: FR-ROCHE-1566810

PATIENT
  Age: 69 Year
  Sex: Male

DRUGS (2)
  1. ROCEPHINE [Suspect]
     Active Substance: CEFTRIAXONE SODIUM
     Indication: ESCHERICHIA BACTERAEMIA
     Route: 042
     Dates: start: 20150405, end: 20150410
  2. ORBENINE [Suspect]
     Active Substance: CLOXACILLIN SODIUM
     Indication: ESCHERICHIA BACTERAEMIA
     Route: 042
     Dates: start: 20150331, end: 20150405

REACTIONS (1)
  - Acute kidney injury [Not Recovered/Not Resolved]

NARRATIVE: CASE EVENT DATE: 20150408
